FAERS Safety Report 16040165 (Version 1)
Quarter: 2019Q1

REPORT INFORMATION
  Report Type: Spontaneous
  Country: JP (occurrence: JP)
  Receive Date: 20190306
  Receipt Date: 20190306
  Transmission Date: 20190418
  Serious: Yes (Life-Threatening, Hospitalization, Other)
  Sender: FDA-Public Use
  Company Number: JP-BAUSCH-BL-2019-006567

PATIENT
  Sex: Male

DRUGS (6)
  1. CLADRIBINE. [Suspect]
     Active Substance: CLADRIBINE
     Indication: ROSAI-DORFMAN SYNDROME
     Dosage: 6 CYCLICAL
     Route: 065
  2. PREDNISOLONE. [Suspect]
     Active Substance: PREDNISOLONE
     Dosage: BASELINE
     Route: 065
  3. CARBOPLATIN. [Suspect]
     Active Substance: CARBOPLATIN
     Indication: ROSAI-DORFMAN SYNDROME
     Route: 065
  4. ETOPOSIDE. [Suspect]
     Active Substance: ETOPOSIDE
     Indication: ROSAI-DORFMAN SYNDROME
     Route: 065
  5. PREDNISOLONE. [Suspect]
     Active Substance: PREDNISOLONE
     Indication: ROSAI-DORFMAN SYNDROME
     Dosage: DOSE ESCALATION
     Route: 065
  6. IFOSFAMIDE. [Suspect]
     Active Substance: IFOSFAMIDE
     Indication: ROSAI-DORFMAN SYNDROME
     Route: 065

REACTIONS (4)
  - Nocardiosis [Unknown]
  - Tumour haemorrhage [Unknown]
  - Glaucoma [Unknown]
  - Pneumonia bacterial [Unknown]
